FAERS Safety Report 9881124 (Version 1)
Quarter: 2014Q1

REPORT INFORMATION
  Report Type: Spontaneous
  Country: US (occurrence: US)
  Receive Date: 20140207
  Receipt Date: 20140207
  Transmission Date: 20141002
  Serious: No
  Sender: FDA-Public Use
  Company Number: US-PFIZER INC-2014030961

PATIENT
  Age: 70 Year
  Sex: Female
  Weight: 53.97 kg

DRUGS (3)
  1. SPIRONOLACTONE [Suspect]
     Indication: LOCAL SWELLING
     Dosage: 0.5 DF, 1X/DAY
     Dates: start: 201401
  2. SPIRONOLACTONE [Suspect]
     Dosage: 0.5 DF, ALTERNATE DAY
     Dates: start: 201401
  3. BUFERIN [Concomitant]
     Indication: PAIN
     Dosage: UNK, AS NEEDED

REACTIONS (9)
  - Rash [Not Recovered/Not Resolved]
  - Dyspnoea [Not Recovered/Not Resolved]
  - Nervousness [Not Recovered/Not Resolved]
  - Chest discomfort [Not Recovered/Not Resolved]
  - Nausea [Not Recovered/Not Resolved]
  - Somnolence [Not Recovered/Not Resolved]
  - Gastric disorder [Not Recovered/Not Resolved]
  - Malaise [Unknown]
  - Intentional drug misuse [Unknown]
